FAERS Safety Report 18436236 (Version 1)
Quarter: 2020Q4

REPORT INFORMATION
  Report Type: Report from Study
  Country: CA (occurrence: CA)
  Receive Date: 20201028
  Receipt Date: 20201028
  Transmission Date: 20210114
  Serious: Yes (Other)
  Sender: FDA-Public Use
  Company Number: CA-JNJFOC-20201032775

PATIENT
  Age: 63 Year
  Sex: Female

DRUGS (2)
  1. STELARA [Suspect]
     Active Substance: USTEKINUMAB
     Route: 042
  2. STELARA [Suspect]
     Active Substance: USTEKINUMAB
     Indication: PRODUCT USED FOR UNKNOWN INDICATION
     Route: 042
     Dates: start: 20201016

REACTIONS (6)
  - Hypotension [Not Recovered/Not Resolved]
  - Dizziness [Recovered/Resolved]
  - Urticaria [Recovered/Resolved]
  - Hyperhidrosis [Recovered/Resolved]
  - Pruritus [Recovered/Resolved]
  - Infusion related reaction [Not Recovered/Not Resolved]

NARRATIVE: CASE EVENT DATE: 20201016
